FAERS Safety Report 23743765 (Version 1)
Quarter: 2024Q2

REPORT INFORMATION
  Report Type: Spontaneous
  Country: US (occurrence: US)
  Receive Date: 20240415
  Receipt Date: 20240415
  Transmission Date: 20240716
  Serious: No
  Sender: FDA-Public Use
  Company Number: US-ABBVIE-5717038

PATIENT
  Age: 41 Year
  Sex: Male
  Weight: 134 kg

DRUGS (1)
  1. REFRESH RELIEVA PF [Suspect]
     Active Substance: CARBOXYMETHYLCELLULOSE SODIUM\GLYCERIN
     Indication: Eye irritation
     Dosage: 1 DROP ON EACH EYE?CMC 5MG/ML;GLYCERIN 9MG.ML SOL
     Route: 047
     Dates: start: 202403

REACTIONS (4)
  - Burning sensation [Recovered/Resolved]
  - Eye pain [Recovered/Resolved]
  - Lacrimation increased [Recovered/Resolved]
  - Discomfort [Recovered/Resolved]

NARRATIVE: CASE EVENT DATE: 20240410
